FAERS Safety Report 15153999 (Version 1)
Quarter: 2018Q3

REPORT INFORMATION
  Report Type: Report from Study
  Country: US (occurrence: US)
  Receive Date: 20180717
  Receipt Date: 20180717
  Transmission Date: 20181010
  Serious: Yes (Death)
  Sender: FDA-Public Use
  Company Number: US-PFIZER INC-2018284245

PATIENT

DRUGS (2)
  1. GENTAMICIN SULFATE. [Suspect]
     Active Substance: GENTAMICIN SULFATE
     Indication: ENDOCARDITIS ENTEROCOCCAL
     Dosage: 3 MG/KG, UNK (OF IBW DIVIDED IN 2?3 DOSES)
  2. AMPICILLIN SODIUM. [Suspect]
     Active Substance: AMPICILLIN SODIUM
     Indication: ENDOCARDITIS ENTEROCOCCAL
     Dosage: 2 G, EVERY 4 HRS

REACTIONS (1)
  - Acute kidney injury [Fatal]
